FAERS Safety Report 5061722-5 (Version None)
Quarter: 2006Q3

REPORT INFORMATION
  Report Type: 
  Country: None (occurrence: None)
  Receive Date: 20060720
  Receipt Date: 20060707
  Transmission Date: 20061208
  Serious: Yes (Other)
  Sender: FDA-Public Use
  Company Number: HQWYE671407JUL06

PATIENT
  Sex: Male

DRUGS (1)
  1. PANTOZOL (PANTOPRAZOLE, INJECTION) [Suspect]
     Dosage: ^SOME/DAY MG^ SC
     Route: 058
     Dates: end: 20060621

REACTIONS (5)
  - EXTRAVASATION [None]
  - INCORRECT ROUTE OF DRUG ADMINISTRATION [None]
  - INJECTION SITE ERYTHEMA [None]
  - INJECTION SITE PAIN [None]
  - INJECTION SITE SWELLING [None]
